FAERS Safety Report 6125490-8 (Version None)
Quarter: 2009Q1

REPORT INFORMATION
  Report Type: 
  Country: None (occurrence: None)
  Receive Date: 20090319
  Receipt Date: 20090319
  Transmission Date: 20090719
  Serious: Yes (Hospitalization, Other)
  Sender: FDA-Public Use
  Company Number: None

PATIENT
  Age: 60 Year
  Sex: Male
  Weight: 81.6475 kg

DRUGS (1)
  1. AZITHROMYCIN [Suspect]
     Indication: BRONCHITIS
     Dosage: 500MG DAY1, 250 MG DAY 2, 3,4,5 ONCE DAILY PO
     Route: 048
     Dates: start: 20090310, end: 20090312

REACTIONS (11)
  - ABDOMINAL PAIN [None]
  - BLOOD PRESSURE INCREASED [None]
  - DIZZINESS [None]
  - FREQUENT BOWEL MOVEMENTS [None]
  - HEART RATE INCREASED [None]
  - MUSCLE SPASMS [None]
  - NECK PAIN [None]
  - OROPHARYNGEAL PAIN [None]
  - POLLAKIURIA [None]
  - TRISMUS [None]
  - VISUAL IMPAIRMENT [None]
